FAERS Safety Report 7411017-7 (Version None)
Quarter: 2011Q2

REPORT INFORMATION
  Report Type: 
  Country: None (occurrence: None)
  Receive Date: 20110413
  Receipt Date: 20110406
  Transmission Date: 20111010
  Serious: Yes (Hospitalization)
  Sender: FDA-Public Use
  Company Number: JP-ABBOTT-11P-087-0717552-00

PATIENT
  Age: 66 Year
  Sex: Male

DRUGS (4)
  1. HUMIRA [Suspect]
     Indication: PSORIATIC ARTHROPATHY
     Route: 058
     Dates: start: 20110224, end: 20110224
  2. GLIMEPIRIDE [Concomitant]
     Indication: DIABETES MELLITUS
     Dates: start: 20101222
  3. ISONIAZID [Suspect]
     Indication: ANTIBIOTIC PROPHYLAXIS
     Route: 048
     Dates: start: 20110224, end: 20110309
  4. FEXOFENADINE HCL [Concomitant]
     Indication: PRURITUS
     Dates: start: 20101222

REACTIONS (4)
  - TONGUE DISORDER [None]
  - STEVENS-JOHNSON SYNDROME [None]
  - CONJUNCTIVAL HYPERAEMIA [None]
  - PYREXIA [None]
